FAERS Safety Report 16983622 (Version 1)
Quarter: 2019Q4

REPORT INFORMATION
  Report Type: Spontaneous
  Country: US (occurrence: US)
  Receive Date: 20191101
  Receipt Date: 20191101
  Transmission Date: 20200122
  Serious: No
  Sender: FDA-Public Use
  Company Number: US-PFIZER INC-2019468608

PATIENT
  Age: 47 Year
  Sex: Female
  Weight: 128.37 kg

DRUGS (1)
  1. CIPROFLOXACIN. [Suspect]
     Active Substance: CIPROFLOXACIN
     Indication: URINARY TRACT INFECTION
     Dosage: UNK

REACTIONS (4)
  - Abdominal discomfort [Recovered/Resolved]
  - Vulvovaginal burning sensation [Recovered/Resolved]
  - Vaginal mucosal blistering [Recovered/Resolved]
  - Anorectal discomfort [Recovered/Resolved]
